FAERS Safety Report 6711777-4 (Version None)
Quarter: 2010Q2

REPORT INFORMATION
  Report Type: 
  Country: None (occurrence: None)
  Receive Date: 20100505
  Receipt Date: 20100428
  Transmission Date: 20101027
  Serious: Yes (Other)
  Sender: FDA-Public Use
  Company Number: B0649962A

PATIENT
  Age: 82 Year
  Sex: Male

DRUGS (1)
  1. CEFUROXIME [Suspect]
     Route: 031
     Dates: start: 20100421, end: 20100421

REACTIONS (1)
  - CORNEAL DISORDER [None]
